FAERS Safety Report 9165348 (Version 2)
Quarter: 2013Q3

REPORT INFORMATION
  Report Type: Spontaneous
  Country: AR (occurrence: AR)
  Receive Date: 20130315
  Receipt Date: 20130819
  Transmission Date: 20140515
  Serious: Yes (Hospitalization)
  Sender: FDA-Public Use
  Company Number: AR-BRISTOL-MYERS SQUIBB COMPANY-17472671

PATIENT
  Sex: 0

DRUGS (1)
  1. YERVOY [Suspect]

REACTIONS (1)
  - Muscular weakness [Recovered/Resolved]
